FAERS Safety Report 5326577-X (Version None)
Quarter: 2007Q2

REPORT INFORMATION
  Report Type: 
  Country: None (occurrence: None)
  Receive Date: 20070516
  Receipt Date: 20070509
  Transmission Date: 20071010
  Serious: Yes (Other)
  Sender: FDA-Public Use
  Company Number: B0467674A

PATIENT
  Age: 69 Year
  Sex: Female

DRUGS (5)
  1. BEECHAMS POWDER [Suspect]
     Indication: HEADACHE
     Dosage: 1SAC THREE TIMES PER DAY
     Route: 048
  2. ATENOLOL [Concomitant]
  3. BETAHISTINE [Concomitant]
  4. CHLORDIAZEPOXIDE [Concomitant]
  5. PROCHLORPERAZINE [Concomitant]

REACTIONS (2)
  - DRUG DEPENDENCE [None]
  - PHARMACEUTICAL PRODUCT COMPLAINT [None]
